FAERS Safety Report 7612240-9 (Version None)
Quarter: 2011Q3

REPORT INFORMATION
  Report Type: 
  Country: None (occurrence: None)
  Receive Date: 20110715
  Receipt Date: 20110701
  Transmission Date: 20111222
  Serious: Yes (Other)
  Sender: FDA-Public Use
  Company Number: PHHY2011RU38048

PATIENT
  Age: 51 Year
  Sex: Female

DRUGS (3)
  1. MIACALCIN [Suspect]
     Indication: OSTEOPOROSIS
     Dosage: 200 IU, 2 WEEKS INTERVAL
     Dates: start: 20110301, end: 20110703
  2. CALCIUM D3 [Concomitant]
     Dosage: UNK
     Dates: end: 20110703
  3. CRESTOR [Concomitant]

REACTIONS (5)
  - NEPHROLITHIASIS [None]
  - ARTHRALGIA [None]
  - RENAL CYST [None]
  - OEDEMA PERIPHERAL [None]
  - BONE PAIN [None]
